FAERS Safety Report 8194040-7 (Version None)
Quarter: 2012Q1

REPORT INFORMATION
  Report Type: 
  Country: None (occurrence: None)
  Receive Date: 20120308
  Receipt Date: 20120301
  Transmission Date: 20120608
  Serious: Yes (Death)
  Sender: FDA-Public Use
  Company Number: FI-MERCK-1203FIN00001

PATIENT
  Age: 74 Year
  Sex: Male

DRUGS (8)
  1. FENTANYL [Concomitant]
     Indication: PAIN
     Route: 061
     Dates: start: 20111229, end: 20120101
  2. FENTANYL [Concomitant]
     Route: 061
     Dates: start: 20120101, end: 20120109
  3. FUROSEMIDE [Concomitant]
     Indication: CARDIAC FAILURE
     Route: 042
     Dates: start: 20111219, end: 20120109
  4. ACETAMINOPHEN [Concomitant]
     Indication: PAIN
     Route: 042
     Dates: start: 20111216, end: 20120109
  5. FENTANYL [Concomitant]
     Route: 061
     Dates: start: 20111222, end: 20111229
  6. MORPHINE [Concomitant]
     Indication: PAIN
     Route: 058
     Dates: start: 20111218, end: 20120109
  7. ENOXAPARIN SODIUM [Concomitant]
     Indication: THROMBOSIS PROPHYLAXIS
     Route: 058
     Dates: start: 20111202, end: 20120109
  8. INVANZ [Suspect]
     Indication: PNEUMONIA
     Route: 041
     Dates: start: 20111219, end: 20120102

REACTIONS (3)
  - ALANINE AMINOTRANSFERASE INCREASED [None]
  - ACTIVATED PARTIAL THROMBOPLASTIN TIME SHORTENED [None]
  - DEATH [None]
